FAERS Safety Report 4660241-5 (Version None)
Quarter: 2005Q2

REPORT INFORMATION
  Report Type: 
  Country: None (occurrence: None)
  Receive Date: 20050427
  Receipt Date: 20050301
  Transmission Date: 20051028
  Serious: No
  Sender: FDA-Public Use
  Company Number: 211873

PATIENT
  Age: 43 Year
  Sex: Female
  Weight: 71.2 kg

DRUGS (3)
  1. XOLAIR [Suspect]
     Indication: ASTHMA
     Dosage: 300, Q4W, SUBCUTANEOUS
     Route: 058
     Dates: start: 20040618, end: 20041230
  2. LOVENOX [Concomitant]
  3. TILADE (NEDOCROMIL SODIUM) [Concomitant]

REACTIONS (3)
  - EAR PAIN [None]
  - INJECTION SITE PAIN [None]
  - PRURITUS [None]
